FAERS Safety Report 4635789-X (Version None)
Quarter: 2005Q2

REPORT INFORMATION
  Report Type: 
  Country: None (occurrence: None)
  Receive Date: 20050413
  Receipt Date: 20050328
  Transmission Date: 20051028
  Serious: Yes (Hospitalization)
  Sender: FDA-Public Use
  Company Number: 200503IM000107

PATIENT
  Age: 36 Year
  Sex: Female

DRUGS (2)
  1. ADVAFERON (A643_INTERFERON ALFACON-1) [Suspect]
     Indication: HEPATITIS C
     Dosage: SEE  IMAGE
     Route: 058
     Dates: start: 20030120, end: 20030123
  2. ADVAFERON (A643_INTERFERON ALFACON-1) [Suspect]
     Indication: HEPATITIS C
     Dosage: SEE  IMAGE
     Route: 058
     Dates: start: 20030203, end: 20030218

REACTIONS (1)
  - DRUG ERUPTION [None]
